FAERS Safety Report 12634914 (Version 1)
Quarter: 2016Q3

REPORT INFORMATION
  Report Type: Spontaneous
  Country: US (occurrence: US)
  Receive Date: 20160809
  Receipt Date: 20160809
  Transmission Date: 20161109
  Serious: No
  Sender: FDA-Public Use
  Company Number: US-PFIZER INC-2016292174

PATIENT
  Age: 43 Year
  Sex: Male
  Weight: 104.3 kg

DRUGS (3)
  1. VIAGRA [Suspect]
     Active Substance: SILDENAFIL CITRATE
     Indication: ORGASMIC SENSATION DECREASED
  2. VIAGRA [Suspect]
     Active Substance: SILDENAFIL CITRATE
     Indication: SENSORY LOSS
     Dosage: 50 MG, 1X/DAY (OCCASIONALLY)
     Route: 048
     Dates: start: 201606
  3. VIAGRA [Suspect]
     Active Substance: SILDENAFIL CITRATE
     Indication: ERECTILE DYSFUNCTION

REACTIONS (1)
  - Drug effect prolonged [Unknown]
